FAERS Safety Report 20739372 (Version 1)
Quarter: 2022Q2

REPORT INFORMATION
  Report Type: Spontaneous
  Country: US (occurrence: US)
  Receive Date: 20220422
  Receipt Date: 20220422
  Transmission Date: 20220721
  Serious: No
  Sender: FDA-Public Use
  Company Number: US-NOVARTISTESTPH-NVSC2022US093425

PATIENT
  Sex: Female

DRUGS (1)
  1. ESTRADIOL [Suspect]
     Active Substance: ESTRADIOL
     Indication: Product used for unknown indication
     Dosage: UNK, (0.025MG/1D 4TTSM)
     Route: 065

REACTIONS (3)
  - Erythema [Recovering/Resolving]
  - Hypersensitivity [Unknown]
  - Product adhesion issue [Unknown]
